FAERS Safety Report 5212581-9 (Version None)
Quarter: 2007Q1

REPORT INFORMATION
  Report Type: 
  Country: None (occurrence: None)
  Receive Date: 20070118
  Receipt Date: 20070110
  Transmission Date: 20070707
  Serious: Yes (Other)
  Sender: FDA-Public Use
  Company Number: CN-PFIZER INC-2006155360

PATIENT
  Age: 79 Year
  Sex: Male

DRUGS (11)
  1. LIPITOR [Suspect]
     Indication: LIPIDS INCREASED
     Route: 048
     Dates: start: 20061205, end: 20061216
  2. ASPIRIN [Concomitant]
     Route: 048
  3. ISOSORBIDE MONONITRATE [Concomitant]
     Route: 048
     Dates: start: 20061205
  4. LOTENSIN [Concomitant]
     Route: 048
     Dates: start: 20061205, end: 20061217
  5. BETALOC [Concomitant]
     Route: 048
     Dates: start: 20061205, end: 20061207
  6. SPIRONOLACTONE [Concomitant]
     Route: 048
     Dates: start: 20061205, end: 20061214
  7. FUROSEMIDE [Concomitant]
     Route: 048
     Dates: start: 20061205, end: 20061214
  8. CINNARIZINE [Concomitant]
     Route: 048
     Dates: start: 20061205, end: 20061217
  9. KETOTIFEN [Concomitant]
     Route: 048
     Dates: start: 20061205
  10. DIGOXIN [Concomitant]
     Route: 048
     Dates: start: 20061206, end: 20061217
  11. CARVEDILOL [Concomitant]
     Route: 048
     Dates: start: 20061207

REACTIONS (3)
  - BLOOD CREATINE PHOSPHOKINASE INCREASED [None]
  - MYALGIA [None]
  - RENAL IMPAIRMENT [None]
